FAERS Safety Report 6877871-2 (Version None)
Quarter: 2010Q3

REPORT INFORMATION
  Report Type: 
  Country: None (occurrence: None)
  Receive Date: 20100727
  Receipt Date: 20100714
  Transmission Date: 20110219
  Serious: Yes (Hospitalization, Other)
  Sender: FDA-Public Use
  Company Number: PHHY2010US22036

PATIENT
  Sex: Female
  Weight: 59 kg

DRUGS (11)
  1. EXJADE [Suspect]
     Indication: SICKLE CELL ANAEMIA
     Dosage: 1500 MG DAILY
     Route: 048
     Dates: start: 20091215
  2. EXJADE [Suspect]
     Indication: IRON OVERLOAD
     Dosage: 1000 MG DAILY
     Route: 048
     Dates: start: 20091224
  3. EXJADE [Suspect]
     Dosage: 1000 MG EVERY OTHER DAY
     Route: 048
  4. DILAUDID [Concomitant]
     Dosage: UNK
  5. VICODIN [Concomitant]
     Dosage: UNK
  6. TORADOL [Concomitant]
  7. HYDROXYUREA [Concomitant]
     Dosage: UNK
  8. DEPO-PROVERA [Concomitant]
     Route: 030
  9. MIRALAX [Concomitant]
  10. FOLIC ACID [Concomitant]
     Dosage: UNK
  11. BENADRYL [Concomitant]

REACTIONS (8)
  - ABDOMINAL PAIN [None]
  - ANAEMIA [None]
  - CANDIDIASIS [None]
  - HAEMORRHOIDAL HAEMORRHAGE [None]
  - PAIN [None]
  - PHARYNGITIS [None]
  - PYREXIA [None]
  - SICKLE CELL ANAEMIA WITH CRISIS [None]
